FAERS Safety Report 7420740-X (Version None)
Quarter: 2011Q2

REPORT INFORMATION
  Report Type: 
  Country: None (occurrence: None)
  Receive Date: 20110418
  Receipt Date: 20110412
  Transmission Date: 20111010
  Serious: Yes (Death, Other)
  Sender: FDA-Public Use
  Company Number: JP-BRISTOL-MYERS SQUIBB COMPANY-15595242

PATIENT
  Age: 23 Year
  Sex: Male
  Weight: 70 kg

DRUGS (10)
  1. KALETRA [Suspect]
     Indication: HIV INFECTION
     Route: 048
  2. AZITHROMYCIN [Suspect]
     Indication: OPPORTUNISTIC INFECTION PROPHYLAXIS
     Route: 048
  3. GANCICLOVIR [Suspect]
     Indication: CYTOMEGALOVIRUS INFECTION
     Dosage: INJ
     Route: 041
  4. STOCRIN [Suspect]
  5. SULFAMETTHOXAZOLE AND TRIMETHOPRIM [Suspect]
     Indication: PROPHYLAXIS
     Route: 048
  6. FLUCONAZOLE [Suspect]
     Indication: OESOPHAGEAL CANDIDIASIS
     Route: 048
  7. ZERIT [Suspect]
     Indication: HIV INFECTION
     Route: 048
  8. EPIVIR [Suspect]
     Indication: HIV INFECTION
     Dosage: TAB
     Route: 048
  9. DOXORUBICIN HCL [Suspect]
     Indication: KAPOSI'S SARCOMA
     Dosage: DOXORUBICIN INTERR FOR 1 MONTH
  10. ZIAGEN [Suspect]

REACTIONS (6)
  - DECREASED APPETITE [None]
  - NAUSEA [None]
  - KAPOSI'S SARCOMA [None]
  - PANCYTOPENIA [None]
  - INTERSTITIAL LUNG DISEASE [None]
  - RESPIRATORY FAILURE [None]
